FAERS Safety Report 9689891 (Version 3)
Quarter: 2013Q4

REPORT INFORMATION
  Report Type: Spontaneous
  Country: US (occurrence: US)
  Receive Date: 20131115
  Receipt Date: 20131212
  Transmission Date: 20140711
  Serious: No
  Sender: FDA-Public Use
  Company Number: US-PFIZER INC-2013321045

PATIENT
  Age: 12 Year
  Sex: Female
  Weight: 60 kg

DRUGS (2)
  1. QUILLIVANT XR [Suspect]
     Indication: ATTENTION DEFICIT/HYPERACTIVITY DISORDER
     Dosage: 30 MG, DAILY
     Route: 048
     Dates: start: 20130610, end: 2013
  2. QUILLIVANT XR [Suspect]
     Dosage: 35 MG, DAILY
     Route: 048
     Dates: start: 2013

REACTIONS (4)
  - Abdominal pain upper [Recovered/Resolved]
  - Product odour abnormal [Unknown]
  - Product physical issue [Unknown]
  - Product taste abnormal [Unknown]
